FAERS Safety Report 9293125 (Version 4)
Quarter: 2013Q3

REPORT INFORMATION
  Report Type: Spontaneous
  Country: NO (occurrence: None)
  Receive Date: 20130514
  Receipt Date: 20130909
  Transmission Date: 20140515
  Serious: Yes (Death, Other)
  Sender: FDA-Public Use
  Company Number: 1709565

PATIENT
  Age: 66 Year
  Sex: Female

DRUGS (2)
  1. GEMCITABINE HYDROCHLORIDE [Suspect]
     Indication: PANCREATIC CARCINOMA
     Route: 042
     Dates: start: 20100916, end: 20110407
  2. VENTOLINE /00139501/ [Concomitant]

REACTIONS (7)
  - Capillary leak syndrome [None]
  - Left ventricular failure [None]
  - Pulmonary hypertension [None]
  - Acidosis [None]
  - Pleural effusion [None]
  - Cardiac failure [None]
  - Renal failure [None]
